FAERS Safety Report 20140360 (Version 2)
Quarter: 2021Q4

REPORT INFORMATION
  Report Type: Spontaneous
  Country: PL (occurrence: PL)
  Receive Date: 20211202
  Receipt Date: 20211221
  Transmission Date: 20220304
  Serious: Yes (Other)
  Sender: FDA-Public Use
  Company Number: PL-MYLANLABS-2021M1085070

PATIENT
  Age: 69 Year
  Sex: Female

DRUGS (7)
  1. PANTOPRAZOLE [Suspect]
     Active Substance: PANTOPRAZOLE
     Indication: Abdominal pain upper
     Dosage: 40 MILLIGRAM, QD, 40 MILLIGRAM, DAILY
     Route: 065
  2. PANTOPRAZOLE [Suspect]
     Active Substance: PANTOPRAZOLE
     Indication: Gastroduodenal ulcer
  3. INDAPAMIDE [Suspect]
     Active Substance: INDAPAMIDE
     Indication: Hypertension
     Dosage: 1.5 MILLIGRAM, QD, 1.5 MILLIGRAM, DAILY
     Route: 065
  4. DICLOFENAC [Suspect]
     Active Substance: DICLOFENAC
     Indication: Ankylosing spondylitis
     Dosage: 75 MILLIGRAM, QD, 75 MILLIGRAM, DAILY
     Route: 065
  5. RAMIPRIL [Suspect]
     Active Substance: RAMIPRIL
     Indication: Hypertension
     Dosage: 5 MILLIGRAM, QD, 5 MILLIGRAM, DAILY
     Route: 065
  6. SPIRONOLACTONE [Suspect]
     Active Substance: SPIRONOLACTONE
     Indication: Hypertension
     Dosage: 25 MILLIGRAM, QD, 25 MILLIGRAM, DAILY
     Route: 065
  7. NICERGOLINE [Suspect]
     Active Substance: NICERGOLINE
     Indication: Dizziness
     Dosage: 60 MILLIGRAM, QD, 60 MILLIGRAM, DAILY
     Route: 065

REACTIONS (2)
  - Abdominal pain upper [Unknown]
  - Product dose omission issue [Unknown]
